FAERS Safety Report 5122138-6 (Version None)
Quarter: 2006Q4

REPORT INFORMATION
  Report Type: 
  Country: None (occurrence: None)
  Receive Date: 20061006
  Receipt Date: 20060901
  Transmission Date: 20070319
  Serious: Yes (Life-Threatening)
  Sender: FDA-Public Use
  Company Number: DE-BOEHRINGER INGELHEIM GMBH, GERMANY-2006-DE-04625DE

PATIENT
  Age: 65 Year
  Sex: Male
  Weight: 102 kg

DRUGS (8)
  1. ALNA OCAS [Suspect]
     Indication: MICTURITION DISORDER
     Route: 048
  2. VOLTAREN [Concomitant]
     Indication: FIBROMYALGIA
     Dosage: 25 MG UP TO 50 MG
  3. SOGOON [Concomitant]
     Indication: DYSPEPSIA
  4. MYRRHINIL [Concomitant]
  5. SALVYSAT [Concomitant]
  6. DICLAC [Concomitant]
  7. ENZYM-LEFAX [Concomitant]
     Indication: DYSPEPSIA
  8. BICANORM [Concomitant]

REACTIONS (4)
  - BRONCHIAL OBSTRUCTION [None]
  - DRUG INTOLERANCE [None]
  - DYSPNOEA [None]
  - NASAL CONGESTION [None]
